FAERS Safety Report 10779572 (Version 2)
Quarter: 2015Q1

REPORT INFORMATION
  Report Type: Spontaneous
  Country: US (occurrence: US)
  Receive Date: 20150210
  Receipt Date: 20150210
  Transmission Date: 20150721
  Serious: No
  Sender: FDA-Public Use
  Company Number: US-GLAXOSMITHKLINE-A1075081A

PATIENT

DRUGS (3)
  1. VERAMYST [Suspect]
     Active Substance: FLUTICASONE FUROATE
     Indication: MULTIPLE ALLERGIES
     Route: 045
     Dates: start: 20140301
  2. NO CONCURRENT MEDICATION [Concomitant]
     Active Substance: UNSPECIFIED INGREDIENT
  3. VERAMYST [Suspect]
     Active Substance: FLUTICASONE FUROATE
     Indication: EYE PRURITUS

REACTIONS (1)
  - Nasal disorder [Unknown]

NARRATIVE: CASE EVENT DATE: 201403
